FAERS Safety Report 5761602-3 (Version None)
Quarter: 2008Q2

REPORT INFORMATION
  Report Type: 
  Country: None (occurrence: None)
  Receive Date: 20080606
  Receipt Date: 20080528
  Transmission Date: 20081010
  Serious: Yes (Other)
  Sender: FDA-Public Use
  Company Number: US-PFIZER INC-2008030683

PATIENT
  Sex: Female
  Weight: 68 kg

DRUGS (11)
  1. ZOLOFT [Suspect]
     Indication: DEPRESSION
     Dosage: DAILY DOSE:100MG
  2. ZOLOFT [Suspect]
     Indication: ANXIETY
  3. CHANTIX [Suspect]
     Indication: EX-SMOKER
  4. ALL OTHER THERAPEUTIC PRODUCTS [Suspect]
     Dates: start: 20080101, end: 20080101
  5. LORAZEPAM [Concomitant]
  6. AMITRIPTYLINE HCL [Concomitant]
  7. VICODIN [Concomitant]
     Indication: MIGRAINE
  8. VALIUM [Concomitant]
  9. ALL OTHER THERAPEUTIC PRODUCTS [Concomitant]
  10. WELLBUTRIN [Concomitant]
  11. ANTIDEPRESSANTS [Concomitant]

REACTIONS (13)
  - ACCIDENTAL EXPOSURE [None]
  - AMNESIA [None]
  - ANGER [None]
  - ANORGASMIA [None]
  - ANXIETY [None]
  - CONTUSION [None]
  - DEPRESSION [None]
  - DYSSTASIA [None]
  - IRRITABILITY [None]
  - MENTAL DISORDER [None]
  - THINKING ABNORMAL [None]
  - VICTIM OF SEXUAL ABUSE [None]
  - VOMITING [None]
